FAERS Safety Report 6132899-5 (Version None)
Quarter: 2009Q1

REPORT INFORMATION
  Report Type: 
  Country: None (occurrence: None)
  Receive Date: 20090326
  Receipt Date: 20090217
  Transmission Date: 20090719
  Serious: No
  Sender: FDA-Public Use
  Company Number: US-BAYER-200913658NA

PATIENT
  Age: 29 Year
  Sex: Female
  Weight: 54 kg

DRUGS (5)
  1. DROSPIRENONE AND ETHINYL ESTRADIOL [Suspect]
     Indication: CONTRACEPTION
     Route: 048
     Dates: start: 20080516
  2. APPULOSS [Concomitant]
     Indication: WEIGHT DECREASED
  3. IMITREX [Concomitant]
     Indication: MIGRAINE
  4. LOVAZA [Concomitant]
     Indication: VITAMIN SUPPLEMENTATION
  5. VITAMINS [Concomitant]
     Indication: VITAMIN SUPPLEMENTATION

REACTIONS (1)
  - METRORRHAGIA [None]
